FAERS Safety Report 17183671 (Version 1)
Quarter: 2019Q4

REPORT INFORMATION
  Report Type: Spontaneous
  Country: SE (occurrence: SE)
  Receive Date: 20191220
  Receipt Date: 20191220
  Transmission Date: 20200122
  Serious: Yes (Hospitalization)
  Sender: FDA-Public Use
  Company Number: SE-PFIZER INC-2019545825

PATIENT
  Age: 13 Year
  Sex: Female

DRUGS (3)
  1. LERGIGAN [PROMETHAZINE HYDROCHLORIDE] [Suspect]
     Active Substance: PROMETHAZINE HYDROCHLORIDE
     Dosage: 50 MG, UNK
     Route: 048
     Dates: start: 20180513, end: 20180513
  2. SERTRALINE HCL [Suspect]
     Active Substance: SERTRALINE HYDROCHLORIDE
     Dosage: 150 MG, UNK
     Route: 048
     Dates: start: 20180513, end: 20180513
  3. PROPAVAN [Suspect]
     Active Substance: PROPIOMAZINE
     Dosage: 300 MG, UNK
     Route: 048
     Dates: start: 20180513, end: 20180513

REACTIONS (4)
  - Intentional self-injury [Unknown]
  - Akathisia [Unknown]
  - Heart rate increased [Unknown]
  - Intentional overdose [Unknown]

NARRATIVE: CASE EVENT DATE: 20180513
